FAERS Safety Report 18361761 (Version 2)
Quarter: 2020Q4

REPORT INFORMATION
  Report Type: Spontaneous
  Country: US (occurrence: US)
  Receive Date: 20201008
  Receipt Date: 20201106
  Transmission Date: 20210114
  Serious: Yes (Death, Hospitalization, Other)
  Sender: FDA-Public Use
  Company Number: US-PFIZER INC-2020386339

PATIENT
  Age: 82 Year
  Sex: Male

DRUGS (14)
  1. BESPONSA [Suspect]
     Active Substance: INOTUZUMAB OZOGAMICIN
     Dosage: 1 MG (BASE DOSE: 0.5MG/M2)
     Route: 042
     Dates: start: 20200415
  2. BESPONSA [Suspect]
     Active Substance: INOTUZUMAB OZOGAMICIN
     Dosage: 1 MG (BASE DOSE: 0.5MG/M2)
     Route: 042
     Dates: start: 20200422
  3. BLINATUMOMAB [Suspect]
     Active Substance: BLINATUMOMAB
     Dosage: UNK
  4. URSODIOL. [Concomitant]
     Active Substance: URSODIOL
     Indication: PROPHYLAXIS
  5. BESPONSA [Suspect]
     Active Substance: INOTUZUMAB OZOGAMICIN
     Dosage: 1 MG (BASE DOSE: 0.5MG/M2)
     Route: 042
     Dates: start: 20200325
  6. BESPONSA [Suspect]
     Active Substance: INOTUZUMAB OZOGAMICIN
     Dosage: 1 MG (BASE DOSE: 0.5MG/M2)
     Route: 042
     Dates: start: 20200506
  7. BESPONSA [Suspect]
     Active Substance: INOTUZUMAB OZOGAMICIN
     Dosage: 1 MG (BASE DOSE: 0.5MG/M2)
     Route: 042
     Dates: start: 20200513
  8. BESPONSA [Suspect]
     Active Substance: INOTUZUMAB OZOGAMICIN
     Dosage: 1 MG (BASE DOSE: 0.5MG/M2)
     Route: 042
     Dates: start: 20200604
  9. METHOTREXATE SODIUM. [Concomitant]
     Active Substance: METHOTREXATE SODIUM
     Dosage: 12 MG (FLAT DOSE)
     Route: 037
     Dates: start: 20200403
  10. BESPONSA [Suspect]
     Active Substance: INOTUZUMAB OZOGAMICIN
     Dosage: 1.611 MG (BASE DOSE: 0.8MG/M2)
     Route: 042
     Dates: start: 20200304
  11. BESPONSA [Suspect]
     Active Substance: INOTUZUMAB OZOGAMICIN
     Dosage: 1 MG (BASE DOSE: 0.5MG/M2)
     Route: 042
     Dates: start: 20200318
  12. BESPONSA [Suspect]
     Active Substance: INOTUZUMAB OZOGAMICIN
     Dosage: 1 MG (BASE DOSE: 0.5MG/M2)
     Route: 042
     Dates: start: 20200408
  13. BESPONSA [Suspect]
     Active Substance: INOTUZUMAB OZOGAMICIN
     Dosage: 1 MG (BASE DOSE: 0.5MG/M2)
     Route: 042
     Dates: start: 20200520
  14. BESPONSA [Suspect]
     Active Substance: INOTUZUMAB OZOGAMICIN
     Dosage: 1 MG (BASE DOSE: 0.5MG/M2)
     Route: 042
     Dates: start: 20200611

REACTIONS (8)
  - Hepatotoxicity [Unknown]
  - Liver disorder [Fatal]
  - Hepatic encephalopathy [Unknown]
  - Hyponatraemia [Unknown]
  - Pneumonia [Unknown]
  - End stage renal disease [Unknown]
  - Hepatorenal syndrome [Unknown]
  - Ascites [Unknown]
